FAERS Safety Report 5130964-2 (Version None)
Quarter: 2006Q4

REPORT INFORMATION
  Report Type: 
  Country: None (occurrence: None)
  Receive Date: 20060829
  Receipt Date: 20060705
  Transmission Date: 20070319
  Serious: No
  Sender: FDA-Public Use
  Company Number: PHEH2006US08690

PATIENT
  Age: 83 Year
  Sex: Female
  Weight: 66.5 kg

DRUGS (2)
  1. EXJADE [Suspect]
     Indication: SICKLE CELL ANAEMIA
     Dosage: SEE IMAGE
     Route: 048
     Dates: start: 20060220, end: 20060601
  2. EXJADE [Suspect]
     Indication: SICKLE CELL ANAEMIA
     Dosage: SEE IMAGE
     Route: 048
     Dates: start: 20060601

REACTIONS (1)
  - BLOOD PRESSURE INCREASED [None]
